FAERS Safety Report 4909947-0 (Version None)
Quarter: 2006Q1

REPORT INFORMATION
  Report Type: 
  Country: None (occurrence: None)
  Receive Date: 20060208
  Receipt Date: 20060126
  Transmission Date: 20060701
  Serious: Yes (Other)
  Sender: FDA-Public Use
  Company Number: 2006014056

PATIENT
  Age: 56 Year
  Sex: Female

DRUGS (4)
  1. LYRICA [Suspect]
     Indication: SYRINGOMYELIA
     Dosage: 50MG TO 200MG (3 IN 1 D), ORAL
     Route: 048
     Dates: start: 20051207, end: 20060111
  2. SERTRALINE [Concomitant]
  3. GABAPENTIN [Concomitant]
  4. CARBAMAZEPINE [Concomitant]

REACTIONS (4)
  - MEMORY IMPAIRMENT [None]
  - PARAESTHESIA [None]
  - PERIPHERAL COLDNESS [None]
  - SPEECH DISORDER [None]
